FAERS Safety Report 6493586-7 (Version None)
Quarter: 2009Q4

REPORT INFORMATION
  Report Type: 
  Country: None (occurrence: None)
  Receive Date: 20091214
  Receipt Date: 20091208
  Transmission Date: 20100525
  Serious: Yes (Hospitalization, Other)
  Sender: FDA-Public Use
  Company Number: A0750363A

PATIENT
  Sex: Male
  Weight: 15 kg

DRUGS (1)
  1. SERETIDE [Suspect]
     Dates: start: 20080626

REACTIONS (4)
  - DYSPNOEA [None]
  - LARYNGITIS [None]
  - PHARYNGEAL OEDEMA [None]
  - TACHYCARDIA [None]
